FAERS Safety Report 4711520-4 (Version None)
Quarter: 2005Q3

REPORT INFORMATION
  Report Type: 
  Country: None (occurrence: None)
  Receive Date: 20050711
  Receipt Date: 20050711
  Transmission Date: 20060218
  Serious: Yes (Hospitalization)
  Sender: FDA-Public Use
  Company Number: None

PATIENT
  Age: 68 Year
  Sex: Male
  Weight: 89 kg

DRUGS (1)
  1. HURRICAINE SPRAY   20% [Suspect]
     Indication: ANAESTHESIA
     Dosage: ONE SPRAY   ORAL MUCOSA
     Route: 048
     Dates: start: 20050322, end: 20050322

REACTIONS (2)
  - CYANOSIS [None]
  - METHAEMOGLOBINAEMIA [None]
